FAERS Safety Report 24777249 (Version 1)
Quarter: 2024Q4

REPORT INFORMATION
  Report Type: Spontaneous
  Country: PT (occurrence: PT)
  Receive Date: 20241226
  Receipt Date: 20241226
  Transmission Date: 20250115
  Serious: Yes (Other)
  Sender: BAYER HEALTHCARE PHARMACEUTICALS INC.
  Company Number: PT-BAYER-2024A179788

PATIENT
  Age: 95 Year
  Sex: Female

DRUGS (1)
  1. CIPROFLOXACIN HYDROCHLORIDE [Suspect]
     Active Substance: CIPROFLOXACIN HYDROCHLORIDE
     Route: 042

REACTIONS (7)
  - Labelled drug-drug interaction issue [None]
  - Spontaneous haemorrhage [None]
  - Acute kidney injury [None]
  - Anticoagulation drug level above therapeutic [None]
  - Anaemia [None]
  - Hypovolaemia [None]
  - Anticoagulation drug level increased [None]
